FAERS Safety Report 9350483 (Version 1)
Quarter: 2013Q2

REPORT INFORMATION
  Report Type: Spontaneous
  Country: US (occurrence: US)
  Receive Date: 20130617
  Receipt Date: 20130617
  Transmission Date: 20140414
  Serious: Yes (Hospitalization, Disabling, Other)
  Sender: FDA-Public Use
  Company Number: US-ASTRAZENECA-2012SE36492

PATIENT
  Sex: Female
  Weight: 81.6 kg

DRUGS (13)
  1. NEXIUM [Suspect]
     Indication: GASTROOESOPHAGEAL REFLUX DISEASE
     Dosage: ONE A DAY
     Route: 048
  2. NEXIUM [Suspect]
     Indication: ABDOMINAL DISCOMFORT
     Dosage: ONE A DAY
     Route: 048
  3. NEXIUM [Suspect]
     Indication: GASTROOESOPHAGEAL REFLUX DISEASE
     Route: 048
     Dates: start: 20130402
  4. NEXIUM [Suspect]
     Indication: ABDOMINAL DISCOMFORT
     Route: 048
     Dates: start: 20130402
  5. TUMS [Concomitant]
  6. ALKA-SELTZER [Concomitant]
  7. CALCIUM-D [Concomitant]
  8. VITAMIN C [Concomitant]
  9. ASPIRIN [Concomitant]
  10. VITAMIN B50 [Concomitant]
  11. POTASSIUM CHLORIDE [Concomitant]
  12. LORATADINE [Concomitant]
  13. EXFORGE [Concomitant]

REACTIONS (11)
  - Lower limb fracture [Unknown]
  - Hip fracture [Unknown]
  - Muscular weakness [Unknown]
  - Osteoporosis [Unknown]
  - Multiple fractures [Unknown]
  - Carpal tunnel syndrome [Unknown]
  - Dysstasia [Unknown]
  - Ankle fracture [Unknown]
  - Fracture [Unknown]
  - Bone pain [Unknown]
  - Osteogenesis imperfecta [Unknown]
